FAERS Safety Report 21668939 (Version 1)
Quarter: 2022Q4

REPORT INFORMATION
  Report Type: Spontaneous
  Country: US (occurrence: US)
  Receive Date: 20221201
  Receipt Date: 20221201
  Transmission Date: 20230113
  Serious: Yes (Hospitalization)
  Sender: FDA-Public Use
  Company Number: US-PFM-2022-08425

PATIENT
  Sex: Female
  Weight: 9.587 kg

DRUGS (1)
  1. HEMANGEOL [Suspect]
     Active Substance: PROPRANOLOL HYDROCHLORIDE
     Indication: Haemangioma
     Dosage: 3.4 ML, QD (1/DAY)
     Route: 048

REACTIONS (3)
  - Respiratory syncytial virus infection [Unknown]
  - Inappropriate schedule of product administration [Unknown]
  - Off label use [Unknown]
